FAERS Safety Report 8384917-1 (Version None)
Quarter: 2012Q2

REPORT INFORMATION
  Report Type: 
  Country: None (occurrence: None)
  Receive Date: 20120524
  Receipt Date: 20120514
  Transmission Date: 20120825
  Serious: Yes (Other)
  Sender: FDA-Public Use
  Company Number: US-PFIZER INC-2012123294

PATIENT
  Age: 59 Year
  Sex: Male

DRUGS (4)
  1. MOTRIN IB [Suspect]
     Indication: PAIN
     Dosage: UNK
  2. CODEINE SULFATE [Suspect]
     Indication: PAIN
     Dosage: UNK
  3. PERCODAN [Suspect]
     Indication: PAIN
     Dosage: UNK
  4. PERCOCET [Suspect]
     Indication: PAIN
     Dosage: UNK
     Route: 065

REACTIONS (1)
  - DUODENAL ULCER [None]
